FAERS Safety Report 20881911 (Version 1)
Quarter: 2022Q2

REPORT INFORMATION
  Report Type: Spontaneous
  Country: DE (occurrence: DE)
  Receive Date: 20220527
  Receipt Date: 20220527
  Transmission Date: 20220720
  Serious: Yes (Life-Threatening, Hospitalization)
  Sender: FDA-Public Use
  Company Number: None

PATIENT
  Age: 64 Year
  Sex: Female
  Weight: 91 kg

DRUGS (8)
  1. PACLITAXEL [Suspect]
     Active Substance: PACLITAXEL
     Indication: Invasive breast carcinoma
     Dates: start: 20220208, end: 20220208
  2. PACLITAXEL [Suspect]
     Active Substance: PACLITAXEL
     Dates: start: 20220302, end: 20220302
  3. PACLITAXEL [Suspect]
     Active Substance: PACLITAXEL
     Dates: start: 20220315, end: 20220315
  4. PACLITAXEL [Suspect]
     Active Substance: PACLITAXEL
     Dates: start: 20220322, end: 20220322
  5. PACLITAXEL [Suspect]
     Active Substance: PACLITAXEL
     Dates: start: 20220308, end: 20220308
  6. TORSEMIDE [Concomitant]
     Active Substance: TORSEMIDE
     Indication: Product used for unknown indication
  7. AMITRIPTYLINE HYDROCHLORIDE [Concomitant]
     Active Substance: AMITRIPTYLINE HYDROCHLORIDE
     Indication: Product used for unknown indication
  8. CANDESARTAN [Concomitant]
     Active Substance: CANDESARTAN
     Indication: Product used for unknown indication

REACTIONS (12)
  - Bone pain [Unknown]
  - Dry mouth [Unknown]
  - Nausea [Unknown]
  - Palpitations [Unknown]
  - Paraesthesia [Not Recovered/Not Resolved]
  - Decreased appetite [Unknown]
  - General physical health deterioration [Not Recovered/Not Resolved]
  - Dizziness postural [Unknown]
  - Chest discomfort [Not Recovered/Not Resolved]
  - Asthenia [Not Recovered/Not Resolved]
  - Anxiety [Unknown]
  - Dyspnoea [Not Recovered/Not Resolved]

NARRATIVE: CASE EVENT DATE: 20220101
